FAERS Safety Report 9115042 (Version 1)
Quarter: 2013Q1

REPORT INFORMATION
  Report Type: Spontaneous
  Country: DK (occurrence: None)
  Receive Date: 20130125
  Receipt Date: 20130125
  Transmission Date: 20140127
  Serious: Yes (Other)
  Sender: FDA-Public Use
  Company Number: 2013MA000619

PATIENT
  Age: 65 Year
  Sex: Male

DRUGS (11)
  1. OXALIPLATIN FOR INJECTION USP 100MG SINGLE-DOSE VIALS (ATLLC) (OXALIPLATIN) [Suspect]
     Indication: CHEMOTHERAPY
     Dosage: IV NOS
     Route: 042
     Dates: start: 20080624, end: 20081216
  2. IRINOTECAN [Suspect]
     Indication: CHEMOTHERAPY
  3. FLUOROURACIL (FLUOROURACIL) [Suspect]
     Indication: CHEMOTHERAPY
  4. CALCIUM FOLINATE [Suspect]
     Indication: CHEMOTHERAPY
  5. ONDANSETRON [Concomitant]
  6. DEXAMETHASONE [Concomitant]
  7. METOCLOPRAMIDE [Concomitant]
  8. LOPERAMIDE [Concomitant]
  9. PIRITON [Concomitant]
  10. AUGMENTIN [Concomitant]
  11. PREDNISOLONE [Concomitant]

REACTIONS (15)
  - Dyspnoea [None]
  - Constipation [None]
  - Oedema peripheral [None]
  - Lacrimation increased [None]
  - Lip ulceration [None]
  - Mucosal inflammation [None]
  - Neuropathy peripheral [None]
  - Diarrhoea [None]
  - Lethargy [None]
  - Pruritus [None]
  - Epistaxis [None]
  - Anaemia [None]
  - Neutrophil count decreased [None]
  - Pruritus [None]
  - Haemorrhage [None]
